FAERS Safety Report 6640372-0 (Version None)
Quarter: 2010Q1

REPORT INFORMATION
  Report Type: 
  Country: None (occurrence: None)
  Receive Date: 20100303
  Receipt Date: 20090211
  Transmission Date: 20100710
  Serious: Yes (Other)
  Sender: FDA-Public Use
  Company Number: 614025

PATIENT
  Age: 56 Year
  Sex: Female
  Weight: 73.9 kg

DRUGS (14)
  1. BONIVA [Suspect]
     Indication: OSTEOPOROSIS
     Dosage: 1 PER 3 MONTH INTRAVENOUS
     Route: 042
     Dates: start: 20090120
  2. AMBIEN [Concomitant]
  3. ASPIRIN [Concomitant]
  4. MICARDIS [Concomitant]
  5. CYMBALTA [Concomitant]
  6. GLUCOPHAGE [Concomitant]
  7. PLAVIX [Concomitant]
  8. PRAVACHOL (CLOPIDOGREL BISULFATE) [Concomitant]
  9. TOPROL-XL [Concomitant]
  10. BENADRYL (*ACRIVASTINE/*AMMONIUM CHLORIDE/*CALAMINE/*CAMPHOR/*CODEINE [Concomitant]
  11. LORAZEPAM [Concomitant]
  12. PHENERGAN SUPPOSITORY (PROMETHAZINE HYDROCHLORIDE) [Concomitant]
  13. TUSSIONEX (HYDROCODONE POLISTIREX/PHENYLTOLOXAMINE) [Concomitant]
  14. VICODIN [Concomitant]

REACTIONS (3)
  - HAEMATOMA [None]
  - INJECTION SITE REACTION [None]
  - PURULENCE [None]
